FAERS Safety Report 12687856 (Version 1)
Quarter: 2016Q3

REPORT INFORMATION
  Report Type: Spontaneous
  Country: US (occurrence: US)
  Receive Date: 20160825
  Receipt Date: 20160825
  Transmission Date: 20161109
  Serious: No
  Sender: FDA-Public Use
  Company Number: US-ELI_LILLY_AND_COMPANY-US201608011269

PATIENT
  Age: 76 Year
  Sex: Female

DRUGS (4)
  1. HUMALOG [Suspect]
     Active Substance: INSULIN LISPRO
     Dosage: 5 U, TID
     Route: 058
     Dates: start: 201601
  2. HUMALOG [Suspect]
     Active Substance: INSULIN LISPRO
     Indication: TYPE 2 DIABETES MELLITUS
     Dosage: 5 U, TID
     Route: 058
     Dates: start: 201601
  3. HUMALOG [Suspect]
     Active Substance: INSULIN LISPRO
     Dosage: 5 U, TID
     Route: 058
     Dates: start: 201601
  4. LANTUS [Concomitant]
     Active Substance: INSULIN GLARGINE

REACTIONS (1)
  - Underdose [Recovered/Resolved]

NARRATIVE: CASE EVENT DATE: 20160808
